FAERS Safety Report 10298634 (Version 1)
Quarter: 2014Q3

REPORT INFORMATION
  Report Type: Spontaneous
  Country: TR (occurrence: TR)
  Receive Date: 20140711
  Receipt Date: 20140711
  Transmission Date: 20150326
  Serious: Yes (Death, Hospitalization, Other)
  Sender: FDA-Public Use
  Company Number: TR-B.I. PHARMACEUTICALS,INC./RIDGEFIELD-2014-BI-30289GD

PATIENT
  Age: 71 Year
  Sex: Male

DRUGS (8)
  1. L DOPA [Suspect]
     Active Substance: LEVODOPA
     Dosage: 750 MG
     Route: 065
  2. RASAGILINE [Concomitant]
     Active Substance: RASAGILINE
     Indication: PARKINSON^S DISEASE
     Route: 065
  3. PRAMIPEXOLE [Suspect]
     Active Substance: PRAMIPEXOLE
     Indication: PARKINSON^S DISEASE
     Dosage: 3 MG
     Route: 065
  4. PRAMIPEXOLE [Suspect]
     Active Substance: PRAMIPEXOLE
     Dosage: UP TO 12 MG/DAY
     Route: 065
  5. L DOPA [Suspect]
     Active Substance: LEVODOPA
     Indication: PARKINSON^S DISEASE
     Route: 065
  6. AMANTADINE [Suspect]
     Active Substance: AMANTADINE
     Indication: PARKINSON^S DISEASE
     Route: 065
  7. QUETIAPINE [Concomitant]
     Active Substance: QUETIAPINE
     Indication: IMPULSE-CONTROL DISORDER
     Dosage: 25 MG
     Route: 065
  8. QUETIAPINE [Concomitant]
     Active Substance: QUETIAPINE
     Dosage: 400 MG
     Route: 065

REACTIONS (9)
  - Stereotypy [Fatal]
  - Neck injury [Unknown]
  - Intentional overdose [Unknown]
  - Dyskinesia [Unknown]
  - Impulse-control disorder [Fatal]
  - Head injury [Unknown]
  - Death [Fatal]
  - Loss of consciousness [Unknown]
  - On and off phenomenon [Unknown]
